FAERS Safety Report 5396809-0 (Version None)
Quarter: 2007Q3

REPORT INFORMATION
  Report Type: 
  Country: None (occurrence: None)
  Receive Date: 20070725
  Receipt Date: 20060905
  Transmission Date: 20080115
  Serious: No
  Sender: FDA-Public Use
  Company Number: US-AMGEN-KDL192422

PATIENT
  Age: 50 Year
  Sex: Male

DRUGS (3)
  1. PROCRIT [Suspect]
     Indication: PRE-EXISTING DISEASE
  2. INTERFERON [Suspect]
  3. RIBAVIRIN [Suspect]

REACTIONS (2)
  - NEPHRITIS [None]
  - PANCYTOPENIA [None]
